FAERS Safety Report 4758508-5 (Version None)
Quarter: 2005Q3

REPORT INFORMATION
  Report Type: 
  Country: None (occurrence: None)
  Receive Date: 20050826
  Receipt Date: 20050811
  Transmission Date: 20060218
  Serious: Yes (Other)
  Sender: FDA-Public Use
  Company Number: AZADE200500252

PATIENT
  Age: 79 Year
  Sex: Male
  Weight: 86 kg

DRUGS (2)
  1. AZACITIDINE (AZACITIDINE) (INJECTION) [Suspect]
     Indication: MYELODYSPLASTIC SYNDROME
     Dosage: (150 MG, [~75 MG/M2] ONCE  DAILY), SUBCUTANEOUS
     Route: 058
     Dates: start: 20050729, end: 20050802
  2. ZOFRAN 9ONDANSETRON HYDROCHLORIDE ) (TABLETS) [Concomitant]

REACTIONS (4)
  - CONDITION AGGRAVATED [None]
  - MYELODYSPLASTIC SYNDROME [None]
  - MYELOFIBROSIS [None]
  - THROMBOCYTOPENIA [None]
